FAERS Safety Report 18559222 (Version 1)
Quarter: 2020Q4

REPORT INFORMATION
  Report Type: Spontaneous
  Country: US (occurrence: US)
  Receive Date: 20201130
  Receipt Date: 20201130
  Transmission Date: 20210114
  Serious: No
  Sender: FDA-Public Use
  Company Number: US-ASTRAZENECA-2020SF54694

PATIENT

DRUGS (1)
  1. RHINOCORT AQUA [Suspect]
     Active Substance: BUDESONIDE
     Indication: NASAL POLYPS
     Dosage: UNKNOWN DOSE AND FREQUENCY
     Route: 045

REACTIONS (1)
  - Nasal polyps [Unknown]
